FAERS Safety Report 19468128 (Version 1)
Quarter: 2021Q2

REPORT INFORMATION
  Report Type: Spontaneous
  Country: PL (occurrence: PL)
  Receive Date: 20210628
  Receipt Date: 20210628
  Transmission Date: 20210717
  Serious: Yes (Death, Other)
  Sender: FDA-Public Use
  Company Number: PL-IPSEN BIOPHARMACEUTICALS, INC.-2021-15553

PATIENT
  Age: 36 Year
  Sex: Female

DRUGS (4)
  1. LUTETIUM (177LU) DOTATATE [Suspect]
     Active Substance: LUTETIUM OXODOTREOTIDE LU-177
     Dosage: 7.4 GBQ
     Route: 065
     Dates: start: 201601
  2. SANDOSTATIN LAR DEPOT [Suspect]
     Active Substance: OCTREOTIDE ACETATE
     Indication: NEUROENDOCRINE TUMOUR
     Dosage: 30 MG, QMO
     Route: 065
     Dates: start: 20150512
  3. LUTETIUM (177LU) DOTATATE [Suspect]
     Active Substance: LUTETIUM OXODOTREOTIDE LU-177
     Indication: NEUROENDOCRINE TUMOUR
     Dosage: UNK
     Route: 065
  4. SOMATULINE AUTOGEL [Suspect]
     Active Substance: LANREOTIDE ACETATE
     Indication: PRODUCT USED FOR UNKNOWN INDICATION
     Dosage: 120 MG, Q4W
     Route: 065
     Dates: start: 20150512

REACTIONS (10)
  - Leukopenia [Unknown]
  - Sepsis [Unknown]
  - Oedema [Unknown]
  - Abdominal abscess [Unknown]
  - Electrolyte imbalance [Unknown]
  - Anaemia [Unknown]
  - Pulmonary embolism [Fatal]
  - Hyperadrenocorticism [Fatal]
  - Blood gastrin increased [Fatal]
  - Hypoalbuminaemia [Unknown]
